FAERS Safety Report 6015130-0 (Version None)
Quarter: 2008Q4

REPORT INFORMATION
  Report Type: 
  Country: None (occurrence: None)
  Receive Date: 20081219
  Receipt Date: 20081219
  Transmission Date: 20090506
  Serious: Yes (Disabling, Other)
  Sender: FDA-Public Use
  Company Number: None

PATIENT
  Age: 89 Year
  Sex: Male
  Weight: 59.8748 kg

DRUGS (1)
  1. LEVAQUIN [Suspect]
     Indication: COLITIS
     Dosage: 500 MG DAILY PO
     Route: 048
     Dates: start: 20081110

REACTIONS (3)
  - LOCAL SWELLING [None]
  - PAIN IN EXTREMITY [None]
  - TENDON PAIN [None]
